FAERS Safety Report 12892622 (Version 3)
Quarter: 2016Q4

REPORT INFORMATION
  Report Type: Spontaneous
  Country: JP (occurrence: JP)
  Receive Date: 20161028
  Receipt Date: 20161221
  Transmission Date: 20170207
  Serious: Yes (Other)
  Sender: FDA-Public Use
  Company Number: PHJP2016JP031072

PATIENT
  Age: 59 Year
  Sex: Female

DRUGS (4)
  1. AREDIA [Suspect]
     Active Substance: PAMIDRONATE DISODIUM
     Indication: HYPERCALCAEMIA
  2. ZOMETA [Suspect]
     Active Substance: ZOLEDRONIC ACID
     Indication: HYPERCALCAEMIA
  3. AREDIA [Suspect]
     Active Substance: PAMIDRONATE DISODIUM
     Indication: HYPERPARATHYROIDISM PRIMARY
     Dosage: 45 MG, UNK
     Route: 041
     Dates: start: 20040304, end: 20061102
  4. ZOMETA [Suspect]
     Active Substance: ZOLEDRONIC ACID
     Indication: HYPERPARATHYROIDISM PRIMARY
     Dosage: 4 MG, UNK
     Route: 041
     Dates: start: 20061207, end: 201306

REACTIONS (6)
  - Erythema [Unknown]
  - Fistula [Recovered/Resolved]
  - Osteomyelitis [Unknown]
  - Osteonecrosis of jaw [Unknown]
  - Gingivitis [Not Recovered/Not Resolved]
  - Swelling [Unknown]

NARRATIVE: CASE EVENT DATE: 2011
